FAERS Safety Report 10024102 (Version 2)
Quarter: 2014Q2

REPORT INFORMATION
  Report Type: Spontaneous
  Country: US (occurrence: US)
  Receive Date: 20140320
  Receipt Date: 20140421
  Transmission Date: 20141212
  Serious: No
  Sender: FDA-Public Use
  Company Number: US-PFIZER INC-2014079992

PATIENT
  Age: 44 Year
  Sex: Female
  Weight: 81.63 kg

DRUGS (10)
  1. PRISTIQ [Suspect]
     Indication: MAJOR DEPRESSION
     Dosage: 100MG IN THE MORNING, 50MG IN THE AFTERNOON AND 100MG AT NIGHT
     Route: 048
  2. PRISTIQ [Suspect]
     Indication: AGORAPHOBIA
  3. SEROQUEL XR [Concomitant]
     Dosage: 250 MG, UNK
  4. ADDERALL [Concomitant]
     Dosage: UNK
  5. FOLIC ACID [Concomitant]
     Dosage: UNK
  6. LEVOTHYROXINE [Concomitant]
     Dosage: UNK
  7. LISINOPRIL [Concomitant]
     Dosage: UNK
  8. XANAX [Concomitant]
     Dosage: 10 MG, 3X/DAY
  9. VITAMIN D [Concomitant]
     Dosage: 50000 UG, WEEKLY
  10. PREDNISONE [Concomitant]
     Dosage: 10 MG, 1X/DAY

REACTIONS (2)
  - Fibromyalgia [Unknown]
  - Intentional product misuse [Unknown]
